FAERS Safety Report 6413610-7 (Version None)
Quarter: 2009Q4

REPORT INFORMATION
  Report Type: 
  Country: None (occurrence: None)
  Receive Date: 20091023
  Receipt Date: 20091023
  Transmission Date: 20100525
  Serious: Yes (Hospitalization, Other)
  Sender: FDA-Public Use
  Company Number: None

PATIENT
  Sex: Male
  Weight: 68.0396 kg

DRUGS (1)
  1. XOLAIR [Suspect]

REACTIONS (6)
  - DEHYDRATION [None]
  - HEPATOMEGALY [None]
  - IMMUNE SYSTEM DISORDER [None]
  - IMMUNODEFICIENCY [None]
  - INFECTIOUS MONONUCLEOSIS [None]
  - SPLENOMEGALY [None]
